FAERS Safety Report 7368610-X (Version None)
Quarter: 2011Q1

REPORT INFORMATION
  Report Type: 
  Country: None (occurrence: None)
  Receive Date: 20110321
  Receipt Date: 20110321
  Transmission Date: 20110831
  Serious: No
  Sender: FDA-Public Use
  Company Number: None

PATIENT
  Age: 4 Year
  Sex: Male
  Weight: 24.9478 kg

DRUGS (1)
  1. DELSYM [Suspect]
     Indication: COUGH
     Dosage: 2.5ML 12HOURS PO
     Route: 048
     Dates: start: 20110201, end: 20110318

REACTIONS (2)
  - PATIENT-DEVICE INCOMPATIBILITY [None]
  - INCORRECT DOSE ADMINISTERED BY DEVICE [None]
